FAERS Safety Report 7099805-0 (Version None)
Quarter: 2010Q4

REPORT INFORMATION
  Report Type: 
  Country: None (occurrence: None)
  Receive Date: 20101112
  Receipt Date: 20101105
  Transmission Date: 20110411
  Serious: Yes (Other)
  Sender: FDA-Public Use
  Company Number: AU-PFIZER INC-2010132007

PATIENT
  Age: 78 Year
  Sex: Female
  Weight: 54.4 kg

DRUGS (21)
  1. REVATIO [Suspect]
     Indication: PULMONARY HYPERTENSION
     Dosage: 20 MG, 4X/DAY
     Route: 048
     Dates: start: 20090303, end: 20090930
  2. REVATIO [Suspect]
     Dosage: 20 MG, 3X/DAY
     Route: 048
     Dates: start: 20091001
  3. REVATIO [Suspect]
     Dosage: 40 MG, 3X/DAY
     Route: 048
     Dates: start: 20091201
  4. AMBRISENTAN [Concomitant]
     Indication: PULMONARY ARTERIAL HYPERTENSION
     Dosage: 10 MG, 1X/DAY
     Route: 048
  5. ILOPROST [Concomitant]
     Indication: PULMONARY ARTERIAL HYPERTENSION
     Dosage: 5 UG, EVERY 4 HRS
     Route: 055
     Dates: start: 20051106
  6. RALOXIFENE [Concomitant]
     Indication: OSTEOPOROSIS
     Dosage: 60 MG, 1X/DAY
     Route: 048
     Dates: start: 20010101, end: 20100806
  7. RAMIPRIL [Concomitant]
     Indication: RENAL FAILURE CHRONIC
     Dosage: 2.5 MG, 1X/DAY
     Route: 048
     Dates: start: 20050131
  8. OMEPRAZOLE [Concomitant]
     Indication: GASTROOESOPHAGEAL REFLUX DISEASE
     Dosage: 20 MG, 2X/DAY
     Route: 048
     Dates: start: 20000101
  9. LEVOTHYROXINE SODIUM [Concomitant]
     Indication: HYPOTHYROIDISM
     Dosage: 125 UG, 1X/DAY
     Route: 048
     Dates: start: 19890101
  10. ACETYLSALICYLIC ACID [Concomitant]
     Indication: ANTIPLATELET THERAPY
     Dosage: 100 MG, 1X/DAY
     Route: 048
     Dates: start: 20070504
  11. PANADOL [Concomitant]
     Indication: OSTEOPOROSIS
     Dosage: 1330 MG, AS NEEDED
     Route: 048
     Dates: start: 20070606
  12. PARACETAMOL [Concomitant]
     Indication: OSTEOPOROSIS
     Dosage: 1000 MG, AS NEEDED
     Route: 048
     Dates: start: 20070717
  13. ALLOPURINOL [Concomitant]
     Indication: GOUT
     Dosage: 100 MG, 1X/DAY
     Route: 048
     Dates: start: 20080223
  14. COLCHICINE [Concomitant]
     Indication: GOUT
     Dosage: 500 UG, 1X/DAY
     Route: 048
     Dates: start: 20080223
  15. VITAMIN D [Concomitant]
     Indication: VITAMIN SUPPLEMENTATION
     Dosage: 1 TABLET DAILY
     Route: 048
     Dates: start: 20080201
  16. VITAMIN E [Concomitant]
     Indication: VITAMIN SUPPLEMENTATION
     Dosage: 1 TABLET DAILY
     Route: 048
     Dates: start: 20080201
  17. FRUSEMIDE [Concomitant]
     Indication: PULMONARY ARTERIAL HYPERTENSION
     Dosage: 60 MG, 1X/DAY
     Route: 048
     Dates: start: 20080802
  18. CEPHALEXIN [Concomitant]
     Indication: HYPERKERATOSIS
     Dosage: 250 MG, 4X/DAY
     Route: 048
     Dates: start: 20090916, end: 20091001
  19. FAMCICLOVIR [Concomitant]
     Indication: HERPES ZOSTER
     Dosage: 250 MG, 3X/DAY
     Route: 048
     Dates: start: 20090907, end: 20090914
  20. OSELTAMIVIR [Concomitant]
     Indication: RESPIRATORY TRACT INFECTION
     Dosage: 75 MG, 2X/DAY
     Route: 048
     Dates: start: 20090815, end: 20090820
  21. FEXOFENADINE [Suspect]
     Indication: ARTHROPOD BITE
     Dosage: 180 MG, AS NEEDED
     Route: 048
     Dates: start: 20091201

REACTIONS (6)
  - ANAEMIA [None]
  - HYPERKERATOSIS [None]
  - ORAL CANDIDIASIS [None]
  - PAIN IN EXTREMITY [None]
  - PHARYNGITIS [None]
  - POST PROCEDURAL HAEMORRHAGE [None]
